FAERS Safety Report 11506995 (Version 1)
Quarter: 2015Q3

REPORT INFORMATION
  Report Type: Report from Study
  Country: US (occurrence: US)
  Receive Date: 20150915
  Receipt Date: 20150915
  Transmission Date: 20151125
  Serious: Yes (Hospitalization)
  Sender: FDA-Public Use
  Company Number: US-BIOGENIDEC-2015BI124714

PATIENT
  Age: 42 Year
  Sex: Female

DRUGS (1)
  1. AVONEX [Suspect]
     Active Substance: INTERFERON BETA-1A
     Indication: MULTIPLE SCLEROSIS
     Route: 030
     Dates: start: 20011012

REACTIONS (5)
  - Influenza like illness [Recovered/Resolved with Sequelae]
  - Sinusitis [Recovered/Resolved]
  - Cellulitis [Recovered/Resolved]
  - Pharyngeal disorder [Not Recovered/Not Resolved]
  - Multiple sclerosis relapse [Recovered/Resolved]

NARRATIVE: CASE EVENT DATE: 2011
